FAERS Safety Report 7363461-4 (Version None)
Quarter: 2011Q1

REPORT INFORMATION
  Report Type: 
  Country: None (occurrence: None)
  Receive Date: 20110321
  Receipt Date: 20110310
  Transmission Date: 20110831
  Serious: No
  Sender: FDA-Public Use
  Company Number: US-JNJFOC-20110305646

PATIENT
  Sex: Female
  Weight: 60.33 kg

DRUGS (2)
  1. VITAMIN TAB [Concomitant]
     Indication: NERVE INJURY
     Route: 030
  2. FENTANYL-100 [Suspect]
     Indication: PAIN
     Route: 062

REACTIONS (4)
  - FEELING ABNORMAL [None]
  - HYPERHIDROSIS [None]
  - INAPPROPRIATE SCHEDULE OF DRUG ADMINISTRATION [None]
  - PRODUCT QUALITY ISSUE [None]
